FAERS Safety Report 14516688 (Version 2)
Quarter: 2019Q4

REPORT INFORMATION
  Report Type: Spontaneous
  Country: US (occurrence: US)
  Receive Date: 20180212
  Receipt Date: 20191018
  Transmission Date: 20200122
  Serious: No
  Sender: FDA-Public Use
  Company Number: US-JNJFOC-20180202053

PATIENT
  Age: 9 Year
  Sex: Male

DRUGS (12)
  1. RISPERDAL [Suspect]
     Active Substance: RISPERIDONE
     Indication: BEHAVIOUR DISORDER
     Route: 048
     Dates: start: 20060509, end: 20070808
  2. RISPERDAL [Suspect]
     Active Substance: RISPERIDONE
     Indication: AFFECT LABILITY
     Route: 048
     Dates: start: 20071025, end: 20131007
  3. RISPERDAL CONSTA [Suspect]
     Active Substance: RISPERIDONE
     Indication: AFFECT LABILITY
  4. RISPERDAL [Suspect]
     Active Substance: RISPERIDONE
     Indication: ATTENTION DEFICIT/HYPERACTIVITY DISORDER
     Route: 048
     Dates: start: 20040629, end: 20041122
  5. RISPERIDONE. [Suspect]
     Active Substance: RISPERIDONE
     Indication: ATTENTION DEFICIT/HYPERACTIVITY DISORDER
  6. RISPERDAL CONSTA [Suspect]
     Active Substance: RISPERIDONE
     Indication: ATTENTION DEFICIT/HYPERACTIVITY DISORDER
  7. RISPERIDONE. [Suspect]
     Active Substance: RISPERIDONE
     Indication: AGGRESSION
     Route: 048
  8. RISPERDAL CONSTA [Suspect]
     Active Substance: RISPERIDONE
     Indication: AGGRESSION
     Route: 030
  9. RISPERDAL [Suspect]
     Active Substance: RISPERIDONE
     Indication: AGGRESSION
  10. RISPERIDONE. [Suspect]
     Active Substance: RISPERIDONE
     Indication: BEHAVIOUR DISORDER
  11. RISPERIDONE. [Suspect]
     Active Substance: RISPERIDONE
     Indication: AFFECT LABILITY
  12. RISPERDAL CONSTA [Suspect]
     Active Substance: RISPERIDONE
     Indication: BEHAVIOUR DISORDER

REACTIONS (2)
  - Gynaecomastia [Unknown]
  - Emotional distress [Unknown]

NARRATIVE: CASE EVENT DATE: 20090121
